FAERS Safety Report 5049242-5 (Version None)
Quarter: 2006Q2

REPORT INFORMATION
  Report Type: 
  Country: None (occurrence: None)
  Receive Date: 20060601
  Receipt Date: 20060302
  Transmission Date: 20061013
  Serious: No
  Sender: FDA-Public Use
  Company Number: US200603000796

PATIENT
  Age: 35 Year
  Sex: Male

DRUGS (4)
  1. CYMBALTA [Suspect]
     Indication: DEPRESSION
     Dosage: 30 MG
     Dates: start: 20060211, end: 20060214
  2. CYMBALTA [Suspect]
     Indication: DEPRESSION
     Dosage: 30 MG
  3. OXYCONTIN [Concomitant]
  4. VALIUM /NET/ (DIAZEPAM) [Concomitant]

REACTIONS (6)
  - FEELING ABNORMAL [None]
  - LIVEDO RETICULARIS [None]
  - PRURITUS [None]
  - RASH [None]
  - SOMNOLENCE [None]
  - URTICARIA [None]
